FAERS Safety Report 22333399 (Version 1)
Quarter: 2023Q2

REPORT INFORMATION
  Report Type: Spontaneous
  Country: NO (occurrence: NO)
  Receive Date: 20230517
  Receipt Date: 20230517
  Transmission Date: 20230722
  Serious: Yes (Hospitalization, Other)
  Sender: FDA-Public Use
  Company Number: NO-NALPROPION PHARMACEUTICALS INC.-NO-2023CUR001898

PATIENT
  Age: 51 Year
  Sex: Female

DRUGS (4)
  1. BUPROPION HYDROCHLORIDE\NALTREXONE HYDROCHLORIDE [Suspect]
     Active Substance: BUPROPION HYDROCHLORIDE\NALTREXONE HYDROCHLORIDE
     Indication: Obesity
     Dosage: STRENGTH 8/90 MG, 2 DF 1 IN 12 HOUR
     Route: 065
     Dates: start: 202110, end: 202304
  2. LEVOTHYROXINE SODIUM [Concomitant]
     Active Substance: LEVOTHYROXINE SODIUM
     Indication: Hypothyroidism
     Dosage: 1 TABLET DAILY, 2 TABLETS TWICE A WEEK
     Dates: start: 2005
  3. VITAMINS NOS [Concomitant]
     Active Substance: VITAMINS
     Indication: Product used for unknown indication
     Dosage: UNK
  4. ATACAND [Concomitant]
     Active Substance: CANDESARTAN CILEXETIL
     Indication: Hypertension
     Dosage: 1 DF, 1 IN 1 D

REACTIONS (3)
  - Gallbladder rupture [Unknown]
  - Infection [Unknown]
  - Cholecystitis [Recovering/Resolving]

NARRATIVE: CASE EVENT DATE: 20230101
